FAERS Safety Report 16594728 (Version 2)
Quarter: 2019Q3

REPORT INFORMATION
  Report Type: Spontaneous
  Country: US (occurrence: US)
  Receive Date: 20190718
  Receipt Date: 20190724
  Transmission Date: 20191004
  Serious: No
  Sender: FDA-Public Use
  Company Number: PHEH2019US029424

PATIENT
  Sex: Female

DRUGS (1)
  1. AFINITOR [Suspect]
     Active Substance: EVEROLIMUS
     Indication: CERVIX CARCINOMA
     Dosage: 10 MG, QD
     Route: 048

REACTIONS (9)
  - Pelvic pain [Unknown]
  - Hypoaesthesia [Unknown]
  - Off label use [Unknown]
  - Abdominal pain [Unknown]
  - Product use in unapproved indication [Unknown]
  - Swelling [Unknown]
  - Epistaxis [Unknown]
  - Abdominal distension [Unknown]
  - Gait disturbance [Unknown]
